FAERS Safety Report 14673143 (Version 1)
Quarter: 2018Q1

REPORT INFORMATION
  Report Type: Spontaneous
  Country: US (occurrence: US)
  Receive Date: 20180322
  Receipt Date: 20180322
  Transmission Date: 20180509
  Serious: Yes (Death)
  Sender: FDA-Public Use
  Company Number: None

PATIENT
  Age: 82 Year
  Sex: Male

DRUGS (2)
  1. PROCRIT [Suspect]
     Active Substance: ERYTHROPOIETIN
     Indication: ANAEMIA OF CHRONIC DISEASE
     Dosage: 8,000 UNITS (0.08ML)  MONTHLY SUBCUTANEOUSLY (SQ)
     Route: 058
     Dates: start: 20170919, end: 20171220
  2. PROCRIT [Suspect]
     Active Substance: ERYTHROPOIETIN
     Indication: CHRONIC KIDNEY DISEASE
     Dosage: 8,000 UNITS (0.08ML)  MONTHLY SUBCUTANEOUSLY (SQ)
     Route: 058
     Dates: start: 20170919, end: 20171220

REACTIONS (2)
  - Death [None]
  - Malaise [None]

NARRATIVE: CASE EVENT DATE: 20180109
